FAERS Safety Report 6019999-5 (Version None)
Quarter: 2008Q4

REPORT INFORMATION
  Report Type: 
  Country: None (occurrence: None)
  Receive Date: 20081226
  Receipt Date: 20081219
  Transmission Date: 20090506
  Serious: Yes (Hospitalization)
  Sender: FDA-Public Use
  Company Number: NL-RANBAXY-2007RR-10578

PATIENT
  Age: 46 Year
  Sex: Male

DRUGS (6)
  1. CIPROFLOXACIN HCL [Suspect]
     Indication: UROSEPSIS
     Dosage: 400 MG, BID
     Route: 042
  2. CLOZAPINE [Suspect]
     Indication: SCHIZOPHRENIA, PARANOID TYPE
     Dosage: 900 MG, UNK
  3. AMOXICILLIN [Concomitant]
     Indication: UROSEPSIS
     Dosage: UNK
     Route: 042
  4. CITALOPRAM [Concomitant]
  5. LORAZEPAM [Concomitant]
  6. VALPROIC ACID [Concomitant]

REACTIONS (2)
  - DRUG INTERACTION [None]
  - RHABDOMYOLYSIS [None]
